FAERS Safety Report 5301584-1 (Version None)
Quarter: 2007Q2

REPORT INFORMATION
  Report Type: 
  Country: None (occurrence: None)
  Receive Date: 20070412
  Receipt Date: 20070327
  Transmission Date: 20071010
  Serious: Yes (Other)
  Sender: FDA-Public Use
  Company Number: 2007000390

PATIENT
  Age: 42 Year
  Sex: Male

DRUGS (1)
  1. TARCEVA [Suspect]
     Indication: LUNG NEOPLASM MALIGNANT
     Dosage: 150 MG (QD), ORAL
     Route: 048
     Dates: start: 20070125, end: 20070209

REACTIONS (6)
  - ACNE [None]
  - DEPRESSION [None]
  - ERYTHEMA [None]
  - HAEMOPTYSIS [None]
  - POISONING [None]
  - RASH [None]
